FAERS Safety Report 5583627-3 (Version None)
Quarter: 2007Q4

REPORT INFORMATION
  Report Type: 
  Country: None (occurrence: None)
  Receive Date: 20071231
  Receipt Date: 20060913
  Transmission Date: 20080405
  Serious: No
  Sender: FDA-Public Use
  Company Number: 20074456

PATIENT
  Sex: Female

DRUGS (1)
  1. LIORESAL [Suspect]
     Indication: MUSCLE SPASTICITY
     Dosage: MCG, DAILY, INTRATHECAL
     Route: 037

REACTIONS (5)
  - DYSURIA [None]
  - INFUSION SITE SWELLING [None]
  - PAIN [None]
  - PROCTALGIA [None]
  - SENSATION OF PRESSURE [None]
